FAERS Safety Report 5180081-0 (Version None)
Quarter: 2006Q4

REPORT INFORMATION
  Report Type: 
  Country: None (occurrence: None)
  Receive Date: 20061212
  Receipt Date: 20061128
  Transmission Date: 20070319
  Serious: Yes (Other)
  Sender: FDA-Public Use
  Company Number: 2006145763

PATIENT
  Age: 50 Year
  Sex: Male

DRUGS (2)
  1. LISTERINE [Suspect]
     Dosage: ORAL
     Route: 048
     Dates: start: 20050101, end: 20050101
  2. DISULFIRAM [Concomitant]

REACTIONS (3)
  - ABDOMINAL PAIN UPPER [None]
  - INCORRECT ROUTE OF DRUG ADMINISTRATION [None]
  - INTENTIONAL DRUG MISUSE [None]
